FAERS Safety Report 21618960 (Version 1)
Quarter: 2022Q4

REPORT INFORMATION
  Report Type: Spontaneous
  Country: US (occurrence: US)
  Receive Date: 20221120
  Receipt Date: 20221120
  Transmission Date: 20230112
  Serious: No
  Sender: FDA-Public Use
  Company Number: US-SANOFI-01364909

PATIENT
  Age: 60 Year
  Sex: Female

DRUGS (1)
  1. INSULIN GLARGINE [Suspect]
     Active Substance: INSULIN GLARGINE
     Indication: Diabetes mellitus
     Dosage: 10 UNITS TWICE DAILY

REACTIONS (5)
  - Hypoacusis [Unknown]
  - Pain [Unknown]
  - Memory impairment [Unknown]
  - Visual impairment [Unknown]
  - Inappropriate schedule of product administration [Unknown]
